FAERS Safety Report 17559603 (Version 2)
Quarter: 2020Q2

REPORT INFORMATION
  Report Type: Report from Study
  Country: IT (occurrence: IT)
  Receive Date: 20200319
  Receipt Date: 20200430
  Transmission Date: 20200713
  Serious: Yes (Death)
  Sender: FDA-Public Use
  Company Number: IT-ROCHE-2566161

PATIENT
  Age: 58 Year
  Sex: Female
  Weight: 58 kg

DRUGS (21)
  1. TRASTUZUMAB. [Suspect]
     Active Substance: TRASTUZUMAB
     Indication: BREAST CANCER
     Route: 058
     Dates: start: 20170110, end: 20171213
  2. PARACETAMOL [Concomitant]
     Active Substance: ACETAMINOPHEN
     Dosage: ONGOING = NOT CHECKED
     Route: 065
     Dates: start: 20161220, end: 20191021
  3. SIMVASTATINE [Concomitant]
     Active Substance: SIMVASTATIN
     Dosage: ONGOING = NOT CHECKED
     Route: 065
     Dates: start: 20150215, end: 20191213
  4. KETOROLAC [Concomitant]
     Active Substance: KETOROLAC TROMETHAMINE
     Dosage: ONGOING = NOT CHECKED
     Route: 065
     Dates: start: 20161215, end: 20191213
  5. PERTUZUMAB. [Suspect]
     Active Substance: PERTUZUMAB
     Indication: BREAST CANCER
     Dosage: MOST RECENT DOSE PRIOR TO THE EVENT: 10/JAN/2017
     Route: 042
     Dates: start: 20161220
  6. BISOPROLOLO [Concomitant]
     Active Substance: BISOPROLOL FUMARATE
     Dosage: ONGOING = NOT CHECKED
     Route: 065
     Dates: start: 20170213, end: 20191213
  7. TRASTUZUMAB EMTANSINE [Suspect]
     Active Substance: ADO-TRASTUZUMAB EMTANSINE
     Indication: BREAST CANCER
     Route: 042
     Dates: start: 20171215, end: 20191021
  8. COLECALCIFEROL [Concomitant]
     Active Substance: CHOLECALCIFEROL
     Dosage: ONGOING = NOT CHECKED
     Route: 065
     Dates: start: 20180627, end: 20191213
  9. GANCICLOVIR. [Concomitant]
     Active Substance: GANCICLOVIR
     Indication: CONFUSIONAL STATE
     Dosage: ONGOING = NOT CHECKED
     Route: 065
     Dates: start: 20191119, end: 20191203
  10. LETROZOLE. [Suspect]
     Active Substance: LETROZOLE
     Indication: BREAST CANCER
     Route: 048
     Dates: start: 20170517
  11. CLORFENAMINA MALEATO [Concomitant]
     Dosage: ONGOING = NOT CHECKED
     Route: 065
     Dates: start: 20161220, end: 20191021
  12. DESAMETASONE [Concomitant]
     Active Substance: DEXAMETHASONE
     Dosage: ONGOING = NOT CHECKED
     Route: 065
     Dates: start: 20171215, end: 20191213
  13. PANTOPRAZOLE [Concomitant]
     Active Substance: PANTOPRAZOLE
     Dosage: ONGOING = NOT CHECKED
     Route: 065
     Dates: end: 20191213
  14. ACETYLSALICYLIC ACID [Concomitant]
     Active Substance: ASPIRIN
     Dosage: ONGOING = NOT CHECKED
     Route: 065
     Dates: start: 20161219, end: 20191213
  15. POLASE [MAGNESIUM ASPARTATE;POTASSIUM ASPARTATE] [Concomitant]
     Dosage: ONGOING = NOT CHECKED
     Route: 065
     Dates: start: 20170510, end: 20191213
  16. DOCETAXEL. [Suspect]
     Active Substance: DOCETAXEL
     Indication: BREAST CANCER
     Dosage: MOST RECENT DOSE PRIOR TO THE EVENT: 21/APR/2017
     Route: 042
     Dates: start: 20161220, end: 20170315
  17. CYANOCOBALAMIN. [Concomitant]
     Active Substance: CYANOCOBALAMIN
     Dosage: ONGOING = NOT CHECKED
     Route: 065
     Dates: start: 20180627, end: 20191213
  18. AMLODIPINA [AMLODIPINE] [Concomitant]
     Active Substance: AMLODIPINE BESYLATE
     Dosage: ONGOING = NOT CHECKED
     Route: 065
     Dates: start: 20160715, end: 20191213
  19. MAGNESIUM [Concomitant]
     Active Substance: MAGNESIUM
     Dosage: ONGOING = NOT CHECKED
     Route: 065
     Dates: start: 20170510, end: 20191213
  20. RAMIPRIL. [Concomitant]
     Active Substance: RAMIPRIL
     Dosage: ONGOING = NOT CHECKED
     Route: 065
     Dates: start: 20140615, end: 20191213
  21. MESALAZINE [Concomitant]
     Active Substance: MESALAMINE
     Dosage: ONGOING = NOT CHECKED
     Route: 065
     Dates: start: 19800615, end: 20191213

REACTIONS (1)
  - Confusional state [Fatal]

NARRATIVE: CASE EVENT DATE: 20191023
